FAERS Safety Report 24618808 (Version 1)
Quarter: 2024Q4

REPORT INFORMATION
  Report Type: Spontaneous
  Country: CA (occurrence: None)
  Receive Date: 20241113
  Receipt Date: 20241113
  Transmission Date: 20250114
  Serious: Yes (Disabling)
  Sender: Public
  Company Number: None

PATIENT
  Age: 41 Year
  Sex: Male
  Weight: 76.5 kg

DRUGS (1)
  1. GADAVIST [Suspect]
     Active Substance: GADOBUTROL
     Indication: X-ray with contrast
     Dosage: OTHER QUANTITY : 7.5 ML;?
     Route: 042
     Dates: start: 20240204, end: 20240204

REACTIONS (1)
  - Gadolinium deposition disease [None]

NARRATIVE: CASE EVENT DATE: 20240204
